FAERS Safety Report 12824787 (Version 10)
Quarter: 2022Q2

REPORT INFORMATION
  Report Type: Spontaneous
  Country: CA (occurrence: CA)
  Receive Date: 20161007
  Receipt Date: 20220506
  Transmission Date: 20220721
  Serious: Yes (Other)
  Sender: FDA-Public Use
  Company Number: CA-TAKEDA-2016TUS017425

PATIENT
  Age: 58 Year
  Sex: Male

DRUGS (8)
  1. LANSOPRAZOLE [Suspect]
     Active Substance: LANSOPRAZOLE
     Dosage: UNK
     Route: 065
  2. PANTOPRAZOLE [Suspect]
     Active Substance: PANTOPRAZOLE
     Dosage: UNK
     Route: 003
  3. ESOMEPRAZOLE MAGNESIUM [Suspect]
     Active Substance: ESOMEPRAZOLE MAGNESIUM
     Dosage: UNK
     Route: 003
  4. OMEPRAZOLE MAGNESIUM [Suspect]
     Active Substance: OMEPRAZOLE MAGNESIUM
     Dosage: UNK
     Route: 003
  5. DEXLANSOPRAZOLE [Suspect]
     Active Substance: DEXLANSOPRAZOLE
     Dosage: UNK
     Route: 003
  6. RABEPRAZOLE [Suspect]
     Active Substance: RABEPRAZOLE
     Dosage: UNK
     Route: 003
  7. ILAPRAZOLE [Suspect]
     Active Substance: ILAPRAZOLE
     Dosage: UNK
     Route: 003
  8. LANSOPRAZOLE [Concomitant]
     Active Substance: LANSOPRAZOLE
     Dosage: UNK
     Route: 003

REACTIONS (9)
  - Dermatitis contact [Not Recovered/Not Resolved]
  - Erythema of eyelid [Not Recovered/Not Resolved]
  - Occupational exposure to air contaminants [Not Recovered/Not Resolved]
  - Occupational dermatitis [Not Recovered/Not Resolved]
  - Occupational exposure to product [Not Recovered/Not Resolved]
  - Dermatitis [Unknown]
  - Swelling of eyelid [Unknown]
  - Eczema eyelids [Unknown]
  - Eczema [Unknown]
